FAERS Safety Report 6641803-2 (Version None)
Quarter: 2010Q1

REPORT INFORMATION
  Report Type: 
  Country: None (occurrence: None)
  Receive Date: 20100316
  Receipt Date: 20100304
  Transmission Date: 20100710
  Serious: Yes (Other)
  Sender: FDA-Public Use
  Company Number: 1000012151

PATIENT
  Age: 22 Month
  Sex: Female

DRUGS (1)
  1. LEVOTHROID [Suspect]
     Dosage: 4.7-9.4 MG (ONCE)

REACTIONS (6)
  - ACCIDENTAL DRUG INTAKE BY CHILD [None]
  - CONVULSION [None]
  - HYPERHIDROSIS [None]
  - OVERDOSE [None]
  - TACHYCARDIA [None]
  - THYROXINE INCREASED [None]
